FAERS Safety Report 6383169-1 (Version None)
Quarter: 2009Q3

REPORT INFORMATION
  Report Type: 
  Country: None (occurrence: None)
  Receive Date: 20090930
  Receipt Date: 20090921
  Transmission Date: 20100115
  Serious: Yes (Other)
  Sender: FDA-Public Use
  Company Number: US-AMGEN-QUU365737

PATIENT
  Sex: Female

DRUGS (1)
  1. ENBREL [Suspect]
     Indication: RHEUMATOID ARTHRITIS
     Route: 058
     Dates: start: 20070907

REACTIONS (8)
  - ABDOMINAL PAIN [None]
  - ANAEMIA [None]
  - ANIMAL BITE [None]
  - ANIMAL SCRATCH [None]
  - DIARRHOEA [None]
  - GASTRIC ULCER [None]
  - HIATUS HERNIA [None]
  - INTESTINAL ULCER [None]
